FAERS Safety Report 16310536 (Version 4)
Quarter: 2019Q2

REPORT INFORMATION
  Report Type: Spontaneous
  Country: US (occurrence: US)
  Receive Date: 20190514
  Receipt Date: 20190621
  Transmission Date: 20190711
  Serious: Yes (Other)
  Sender: FDA-Public Use
  Company Number: US-PFIZER INC-2019199912

PATIENT
  Age: 7 Year
  Sex: Male
  Weight: 17 kg

DRUGS (2)
  1. GENOTROPIN [Suspect]
     Active Substance: SOMATROPIN
     Dosage: 0.9 MG, ALTERNATE DAY (TOOK 1.0 MG ONE NIGHT AND 0.90 MG THE NEXT NIGHT,AVERAGE OUT TO THE 0.95MG)
     Dates: start: 201807
  2. GENOTROPIN [Suspect]
     Active Substance: SOMATROPIN
     Indication: BODY HEIGHT BELOW NORMAL
     Dosage: 1 MG, ALTERNATE DAY (TOOK 1.0 MG ONE NIGHT AND 0.90 MG THE NEXT NIGHT TO AVERAGE OUT TO THE 0.95MG)
     Dates: start: 201807

REACTIONS (3)
  - Pneumonia [Unknown]
  - Device breakage [Unknown]
  - Product dose omission [Unknown]

NARRATIVE: CASE EVENT DATE: 20190520
